FAERS Safety Report 25735736 (Version 1)
Quarter: 2025Q3

REPORT INFORMATION
  Report Type: Spontaneous
  Country: US (occurrence: None)
  Receive Date: 20250828
  Receipt Date: 20250828
  Transmission Date: 20251021
  Serious: Yes (unspecified)
  Sender: FDA-CTU
  Company Number: None

PATIENT
  Age: 52 Year
  Sex: Female
  Weight: 98 kg

DRUGS (1)
  1. CARBOPLATIN [Suspect]
     Active Substance: CARBOPLATIN
     Indication: Breast cancer
     Dosage: OTHER FREQUENCY : WEEKLY;?
     Route: 042
     Dates: start: 20250702, end: 20250702

REACTIONS (5)
  - Feeling hot [None]
  - Rash erythematous [None]
  - Paraesthesia [None]
  - Throat tightness [None]
  - Odynophagia [None]

NARRATIVE: CASE EVENT DATE: 20250702
